FAERS Safety Report 23273931 (Version 1)
Quarter: 2023Q4

REPORT INFORMATION
  Report Type: Report from Study
  Country: EG (occurrence: EG)
  Receive Date: 20231207
  Receipt Date: 20231207
  Transmission Date: 20240110
  Serious: Yes (Other)
  Sender: FDA-Public Use
  Company Number: EG-Merck Healthcare KGaA-2023491741

PATIENT
  Age: 26 Year
  Sex: Male

DRUGS (1)
  1. REBIF [Suspect]
     Active Substance: INTERFERON BETA-1A
     Indication: Multiple sclerosis
     Route: 058
     Dates: start: 20200918

REACTIONS (12)
  - Colitis [Unknown]
  - Alopecia [Unknown]
  - Skin discolouration [Unknown]
  - Headache [Unknown]
  - Fatigue [Unknown]
  - Injection site discolouration [Unknown]
  - Cystitis noninfective [Unknown]
  - Head discomfort [Unknown]
  - Vision blurred [Unknown]
  - Tinnitus [Unknown]
  - Balance disorder [Unknown]
  - Cognitive disorder [Unknown]
